FAERS Safety Report 17292182 (Version 1)
Quarter: 2020Q1

REPORT INFORMATION
  Report Type: Spontaneous
  Country: BR (occurrence: BR)
  Receive Date: 20200121
  Receipt Date: 20200121
  Transmission Date: 20200409
  Serious: Yes (Other)
  Sender: FDA-Public Use
  Company Number: BR-BAYER-2019-224859

PATIENT
  Age: 47 Year
  Sex: Female

DRUGS (3)
  1. MIRENA [Suspect]
     Active Substance: LEVONORGESTREL
     Indication: HORMONE REPLACEMENT THERAPY
     Dosage: 20 MCG/24HR, CONT
     Route: 015
  2. MIRENA [Suspect]
     Active Substance: LEVONORGESTREL
     Indication: HORMONE REPLACEMENT THERAPY
     Dosage: 20 MCG/24HR, CONT
     Route: 015
     Dates: start: 20171018
  3. MIRENA [Suspect]
     Active Substance: LEVONORGESTREL
     Indication: HORMONE REPLACEMENT THERAPY

REACTIONS (3)
  - Off label use of device [None]
  - Device dislocation [Not Recovered/Not Resolved]
  - Device use issue [None]

NARRATIVE: CASE EVENT DATE: 201710
